FAERS Safety Report 4391499-8 (Version None)
Quarter: 2004Q3

REPORT INFORMATION
  Report Type: 
  Country: None (occurrence: None)
  Receive Date: 20040702
  Receipt Date: 20040319
  Transmission Date: 20050211
  Serious: Yes (Other)
  Sender: FDA-Public Use
  Company Number: 2003UW14131

PATIENT
  Age: 64 Year
  Sex: Female
  Weight: 56.6996 kg

DRUGS (3)
  1. CRESTOR [Suspect]
     Indication: HYPERCHOLESTEROLAEMIA
     Dosage: 10 MG QD PO
     Route: 048
     Dates: start: 20030908
  2. EVISTA [Concomitant]
  3. LIPITOR [Concomitant]

REACTIONS (6)
  - ABDOMINAL PAIN [None]
  - HERPES ZOSTER [None]
  - MUSCULAR WEAKNESS [None]
  - MYALGIA [None]
  - NAUSEA [None]
  - PAIN [None]
